FAERS Safety Report 6068918-4 (Version None)
Quarter: 2009Q1

REPORT INFORMATION
  Report Type: 
  Country: None (occurrence: None)
  Receive Date: 20090206
  Receipt Date: 20090202
  Transmission Date: 20090719
  Serious: Yes (Death, Hospitalization)
  Sender: FDA-Public Use
  Company Number: JP-BAYER-200813040BYL

PATIENT
  Age: 79 Year
  Sex: Male
  Weight: 48 kg

DRUGS (2)
  1. NEXAVAR [Suspect]
     Indication: RENAL CELL CARCINOMA STAGE IV
     Dosage: UNIT DOSE: 200 MG
     Route: 048
     Dates: start: 20080912, end: 20080925
  2. NEXAVAR [Suspect]
     Dosage: UNIT DOSE: 200 MG
     Route: 048
     Dates: start: 20080926, end: 20081218

REACTIONS (3)
  - ALTERED STATE OF CONSCIOUSNESS [None]
  - PNEUMONIA [None]
  - RENAL CELL CARCINOMA STAGE IV [None]
